FAERS Safety Report 7495012-8 (Version None)
Quarter: 2011Q2

REPORT INFORMATION
  Report Type: 
  Country: None (occurrence: None)
  Receive Date: 20110520
  Receipt Date: 20110517
  Transmission Date: 20111010
  Serious: Yes (Other)
  Sender: FDA-Public Use
  Company Number: US-CEPHALON-2011002281

PATIENT
  Sex: Female
  Weight: 93 kg

DRUGS (6)
  1. BACLOFEN [Concomitant]
  2. FENTORA [Suspect]
     Indication: BACK PAIN
  3. VALIUM [Concomitant]
     Indication: BACK PAIN
  4. BENADRYL [Concomitant]
  5. LUNESTA [Concomitant]
     Dates: start: 20100101
  6. FENTORA [Suspect]
     Indication: ABDOMINAL PAIN
     Route: 002
     Dates: start: 20110506

REACTIONS (5)
  - DRUG WITHDRAWAL SYNDROME [None]
  - ABDOMINAL PAIN UPPER [None]
  - HEADACHE [None]
  - DRUG PRESCRIBING ERROR [None]
  - DRUG INEFFECTIVE FOR UNAPPROVED INDICATION [None]
